FAERS Safety Report 5123994-8 (Version None)
Quarter: 2006Q3

REPORT INFORMATION
  Report Type: 
  Country: None (occurrence: None)
  Receive Date: 20060807
  Receipt Date: 20060126
  Transmission Date: 20061208
  Serious: Yes (Hospitalization)
  Sender: FDA-Public Use
  Company Number: 144376USA

PATIENT
  Age: 43 Year
  Sex: Female
  Weight: 58.9676 kg

DRUGS (2)
  1. TIZANIDINE HCL [Suspect]
     Indication: MUSCLE SPASMS
     Dosage: ILLIGRAM Q6HR, ORAL
     Route: 048
     Dates: start: 20050313, end: 20050318
  2. INHALER (NOS) [Concomitant]

REACTIONS (5)
  - CONDITION AGGRAVATED [None]
  - DYSKINESIA [None]
  - DYSPHEMIA [None]
  - MUSCLE SPASMS [None]
  - SPEECH DISORDER [None]
